FAERS Safety Report 8005704-X (Version None)
Quarter: 2011Q4

REPORT INFORMATION
  Report Type: 
  Country: None (occurrence: None)
  Receive Date: 20111223
  Receipt Date: 20111214
  Transmission Date: 20120403
  Serious: Yes (Hospitalization, Other)
  Sender: FDA-Public Use
  Company Number: FI-NOVOPROD-329984

PATIENT

DRUGS (2)
  1. PROTAPHANE [Suspect]
     Indication: GESTATIONAL DIABETES
     Dosage: 2 UNK, BID
     Route: 064
     Dates: start: 20061004
  2. HUMALOG [Suspect]
     Indication: GESTATIONAL DIABETES
     Dosage: UNK
     Route: 064
     Dates: start: 20061205

REACTIONS (3)
  - FOETAL EXPOSURE DURING PREGNANCY [None]
  - HYPOGLYCAEMIA NEONATAL [None]
  - FOETAL MACROSOMIA [None]
